FAERS Safety Report 5987119-9 (Version None)
Quarter: 2008Q4

REPORT INFORMATION
  Report Type: 
  Country: None (occurrence: None)
  Receive Date: 20081209
  Receipt Date: 20081128
  Transmission Date: 20090506
  Serious: Yes (Other)
  Sender: FDA-Public Use
  Company Number: GR-ROCHE-600324

PATIENT
  Age: 60 Year
  Sex: Female

DRUGS (2)
  1. BONIVA [Suspect]
     Indication: DRUG USE FOR UNKNOWN INDICATION
     Dosage: FORM: FILM COATED TABLETS
     Route: 048
     Dates: start: 20080901
  2. CALCITONIN-SALMON [Concomitant]
     Dosage: DRUG NAME: CALCITONIN NOS

REACTIONS (2)
  - CHEST PAIN [None]
  - HYPOAESTHESIA [None]
